FAERS Safety Report 8879884 (Version 1)
Quarter: 2012Q4

REPORT INFORMATION
  Report Type: 
  Country: HK (occurrence: HK)
  Receive Date: 20121031
  Receipt Date: 20121031
  Transmission Date: 20130627
  Serious: Yes (Hospitalization, Other)
  Sender: FDA-Public Use
  Company Number: HK-ABBOTT-12P-075-1002176-00

PATIENT
  Sex: Male

DRUGS (9)
  1. VALPROATE SODIUM [Suspect]
     Indication: BIPOLAR DISORDER
     Route: 065
     Dates: start: 2007
  2. OLANZAPINE [Suspect]
     Indication: BIPOLAR DISORDER
     Dosage: At bedtime
  3. RISPERIDONE [Suspect]
     Indication: BIPOLAR DISORDER
     Route: 051
     Dates: start: 2007
  4. RISPERIDONE [Suspect]
     Route: 048
  5. RISPERIDONE [Suspect]
     Route: 051
  6. RISPERIDONE [Suspect]
     Route: 048
  7. QUETIAPINE FUMARATE [Suspect]
     Indication: BIPOLAR DISORDER
     Dosage: At bedtime
  8. LITHIUM [Concomitant]
     Indication: PRODUCT USED FOR UNKNOWN INDICATION
     Dates: start: 2007
  9. VITAMIN E [Concomitant]
     Indication: PRODUCT USED FOR UNKNOWN INDICATION

REACTIONS (12)
  - Rebound effect [Unknown]
  - Mania [Unknown]
  - Treatment noncompliance [Unknown]
  - Mania [Unknown]
  - Poor quality sleep [Unknown]
  - Flight of ideas [Unknown]
  - Irritability [Unknown]
  - Tardive dyskinesia [Unknown]
  - Social avoidant behaviour [Unknown]
  - Poor quality sleep [Unknown]
  - Oropharyngeal pain [Unknown]
  - Headache [Unknown]
